FAERS Safety Report 21283433 (Version 1)
Quarter: 2022Q3

REPORT INFORMATION
  Report Type: Spontaneous
  Country: US (occurrence: None)
  Receive Date: 20220831
  Receipt Date: 20220831
  Transmission Date: 20221027
  Serious: Yes (Hospitalization)
  Sender: FDA-Public Use
  Company Number: None

PATIENT
  Age: 67 Year
  Sex: Female

DRUGS (24)
  1. OPSUMIT [Suspect]
     Active Substance: MACITENTAN
     Indication: Pulmonary arterial hypertension
     Dosage: FREQUENCY : DAILY;?
     Route: 048
     Dates: start: 20160802
  2. VELETRI [Concomitant]
  3. SPIRONOLACTONE [Concomitant]
  4. TORSEMIDE [Concomitant]
  5. DIGOXIN [Concomitant]
  6. NORCO [Concomitant]
  7. MVI-MINERALS [Concomitant]
  8. FERROUS GLUCONATE [Concomitant]
  9. CALCIUM CITRATE-VIT D3 [Concomitant]
  10. VITAMIN B COMPLEX-FIT C [Concomitant]
  11. VITAMIN D3 [Concomitant]
     Active Substance: CHOLECALCIFEROL
  12. VITAMIN B12 [Concomitant]
     Active Substance: CYANOCOBALAMIN
  13. VITAMIN D2 [Concomitant]
  14. ALLOPURINOL [Concomitant]
  15. SUCRALFATE [Concomitant]
  16. LEVOTHYROXINE [Concomitant]
  17. QUESTRAN [Concomitant]
  18. PILOCARPINE [Concomitant]
  19. STIOLTO RESPIMAT [Concomitant]
  20. FAMOTIDINE [Concomitant]
  21. PANTOPRAZOLE [Concomitant]
  22. VOLTAREN TOP GEL [Concomitant]
  23. MELATONIN [Concomitant]
  24. COLCHICINE [Concomitant]

REACTIONS (3)
  - Rectal haemorrhage [None]
  - Shock haemorrhagic [None]
  - Abdominal adhesions [None]

NARRATIVE: CASE EVENT DATE: 20220813
